FAERS Safety Report 24233002 (Version 1)
Quarter: 2024Q3

REPORT INFORMATION
  Report Type: Spontaneous
  Country: CN (occurrence: CN)
  Receive Date: 20240821
  Receipt Date: 20240821
  Transmission Date: 20241016
  Serious: Yes (Life-Threatening, Other)
  Sender: BAYER
  Company Number: CN-BAYER-2024A120054

PATIENT
  Age: 56 Year
  Sex: Female

DRUGS (3)
  1. ULTRAVIST [Suspect]
     Active Substance: IOPROMIDE
     Indication: Computerised tomogram thorax
     Dosage: 85 ML, ONCE
     Route: 042
     Dates: start: 20240820, end: 20240820
  2. ULTRAVIST [Suspect]
     Active Substance: IOPROMIDE
     Indication: Computerised tomogram abdomen
  3. ULTRAVIST [Suspect]
     Active Substance: IOPROMIDE
     Indication: Uterine cancer

REACTIONS (12)
  - Anaphylactic shock [Recovering/Resolving]
  - Unresponsive to stimuli [Recovered/Resolved]
  - Blood pressure decreased [Recovering/Resolving]
  - Depressed level of consciousness [Recovered/Resolved]
  - Head discomfort [None]
  - Tinnitus [None]
  - Palpitations [None]
  - Chest discomfort [None]
  - Erythema [None]
  - Hyperhidrosis [None]
  - Cold sweat [None]
  - Oxygen saturation decreased [Recovered/Resolved]

NARRATIVE: CASE EVENT DATE: 20240820
